FAERS Safety Report 4464673-X (Version None)
Quarter: 2004Q3

REPORT INFORMATION
  Report Type: 
  Country: None (occurrence: None)
  Receive Date: 20040929
  Receipt Date: 20040913
  Transmission Date: 20050211
  Serious: Yes (Hospitalization)
  Sender: FDA-Public Use
  Company Number: US_0409105327

PATIENT
  Age: 68 Year
  Sex: Male
  Weight: 66 kg

DRUGS (2)
  1. GEMZAR [Suspect]
     Indication: BLADDER CANCER
  2. CISPLATIN [Concomitant]

REACTIONS (13)
  - ABDOMINAL DISTENSION [None]
  - ABDOMINAL PAIN [None]
  - ABNORMAL FAECES [None]
  - DEHYDRATION [None]
  - DIARRHOEA HAEMORRHAGIC [None]
  - FLATULENCE [None]
  - MUCOSAL INFLAMMATION [None]
  - NAUSEA [None]
  - PALLOR [None]
  - PROSTRATION [None]
  - URINARY INCONTINENCE [None]
  - VOMITING [None]
  - X-RAY GASTROINTESTINAL TRACT ABNORMAL [None]
